FAERS Safety Report 11635521 (Version 1)
Quarter: 2015Q4

REPORT INFORMATION
  Report Type: Spontaneous
  Country: US (occurrence: US)
  Receive Date: 20151016
  Receipt Date: 20151016
  Transmission Date: 20160304
  Serious: No
  Sender: FDA-Public Use
  Company Number: US-009507513-1510USA007639

PATIENT
  Sex: Female

DRUGS (1)
  1. NASONEX [Suspect]
     Active Substance: MOMETASONE FUROATE
     Dosage: UNK
     Dates: start: 2003

REACTIONS (5)
  - Nasal congestion [Unknown]
  - Drug dose omission [Unknown]
  - Product distribution issue [Unknown]
  - Seasonal allergy [Unknown]
  - Discomfort [Unknown]

NARRATIVE: CASE EVENT DATE: 2015
